FAERS Safety Report 18360037 (Version 1)
Quarter: 2020Q4

REPORT INFORMATION
  Report Type: Spontaneous
  Country: CA (occurrence: CA)
  Receive Date: 20201008
  Receipt Date: 20201008
  Transmission Date: 20210114
  Serious: Yes (Hospitalization)
  Sender: FDA-Public Use
  Company Number: CA-TEVA-2020-CA-1836525

PATIENT
  Age: 37 Year
  Sex: Female
  Weight: 73 kg

DRUGS (5)
  1. SEASONALE [Suspect]
     Active Substance: ETHINYL ESTRADIOL\LEVONORGESTREL
     Dosage: 1 DOSAGE FORMS DAILY;
     Route: 048
  2. ESOMEPRAZOLE. [Concomitant]
     Active Substance: ESOMEPRAZOLE MAGNESIUM
  3. NITROFURANTOIN. [Concomitant]
     Active Substance: NITROFURANTOIN
  4. PROBIOTIC [Concomitant]
     Active Substance: PROBIOTICS NOS
  5. NAPROXEN. [Concomitant]
     Active Substance: NAPROXEN

REACTIONS (2)
  - Portal vein thrombosis [Recovering/Resolving]
  - Pulmonary embolism [Recovering/Resolving]
